FAERS Safety Report 4520920-7 (Version None)
Quarter: 2004Q4

REPORT INFORMATION
  Report Type: 
  Country: None (occurrence: None)
  Receive Date: 20041206
  Receipt Date: 20041206
  Transmission Date: 20050328
  Serious: Yes (Life-Threatening, Hospitalization)
  Sender: FDA-Public Use
  Company Number: None

PATIENT
  Age: 23 Year
  Sex: Female
  Weight: 86.1834 kg

DRUGS (11)
  1. SEROQUEL [Suspect]
     Indication: HYPOMANIA
     Dosage: 6,000MG  OVERDOSE ORAL
     Route: 048
     Dates: start: 20020825, end: 20041204
  2. SEROQUEL [Suspect]
     Indication: INSOMNIA
     Dosage: 6,000MG  OVERDOSE ORAL
     Route: 048
     Dates: start: 20020825, end: 20041204
  3. SEROQUEL [Suspect]
     Indication: MANIA
     Dosage: 6,000MG  OVERDOSE ORAL
     Route: 048
     Dates: start: 20020825, end: 20041204
  4. EFFEXOR XR [Concomitant]
  5. WELLBUTRIN XL [Concomitant]
  6. GEODON [Concomitant]
  7. TRILEPTAL [Concomitant]
  8. KLONOPIN [Concomitant]
  9. ALBUTEROL [Concomitant]
  10. SEREVENT [Concomitant]
  11. NAPROXEN [Concomitant]

REACTIONS (3)
  - OVERDOSE [None]
  - RESPIRATORY FAILURE [None]
  - SUICIDE ATTEMPT [None]
